FAERS Safety Report 13661662 (Version 6)
Quarter: 2020Q3

REPORT INFORMATION
  Report Type: Report from Study
  Country: JP (occurrence: JP)
  Receive Date: 20170616
  Receipt Date: 20171011
  Transmission Date: 20201105
  Serious: Yes (Death, Hospitalization)
  Sender: FDA-Public Use
  Company Number: JP-ASTRAZENECA-2017SE42934

PATIENT
  Age: 19198 Day
  Sex: Male

DRUGS (43)
  1. LANSOPRAZOLE. [Concomitant]
     Active Substance: LANSOPRAZOLE
     Indication: PROPHYLAXIS
     Route: 048
     Dates: start: 20170307
  2. DICLOFENAC SODIUM. [Concomitant]
     Active Substance: DICLOFENAC SODIUM
     Indication: PYREXIA
     Dosage: 25.0MG AS REQUIRED
     Route: 048
     Dates: start: 20170416, end: 20170416
  3. METOCLOPRAMIDE HYDROCHLORIDE. [Concomitant]
     Active Substance: METOCLOPRAMIDE HYDROCHLORIDE
     Indication: NAUSEA
     Dosage: 10.0MG AS REQUIRED
     Route: 042
     Dates: start: 20170414, end: 20170416
  4. BFLUID [Concomitant]
     Active Substance: AMINO ACIDS\DEXTROSE\ELECTROLYTES NOS\VITAMINS
     Indication: MALNUTRITION
     Route: 042
     Dates: start: 20170417, end: 20170418
  5. OXYCODONE HYDROCHLORIDE. [Concomitant]
     Active Substance: OXYCODONE HYDROCHLORIDE
     Indication: CANCER PAIN
     Dosage: 50.0MG AS REQUIRED
     Route: 048
     Dates: start: 20170414, end: 20170414
  6. DICLOFENAC SODIUM. [Concomitant]
     Active Substance: DICLOFENAC SODIUM
     Indication: CANCER PAIN
     Dosage: 25.0MG AS REQUIRED
     Route: 048
     Dates: start: 20170416, end: 20170416
  7. CARBAMAZEPINE. [Concomitant]
     Active Substance: CARBAMAZEPINE
     Indication: CANCER PAIN
     Route: 048
     Dates: start: 20170405, end: 20170417
  8. METRONIDAZOLE. [Concomitant]
     Active Substance: METRONIDAZOLE
     Indication: WOUND COMPLICATION
     Dosage: 1500.0MG AS REQUIRED
     Route: 048
     Dates: start: 20170405, end: 20170428
  9. BFLUID [Concomitant]
     Active Substance: AMINO ACIDS\DEXTROSE\ELECTROLYTES NOS\VITAMINS
     Indication: NAUSEA
     Route: 042
     Dates: start: 20170417, end: 20170506
  10. VITAMIN B COMPLEX [Concomitant]
     Active Substance: CYANOCOBALAMIN\DEXPANTHENOL\NIACINAMIDE\PYRIDOXINE HYDROCHLORIDE\RIBOFLAVIN 5^-PHOSPHATE SODIUM\THIAMINE HYDROCHLORIDE\VITAMIN B COMPLEX
     Indication: MALNUTRITION
     Route: 042
     Dates: start: 20170414, end: 20170416
  11. LOXOPROFEN SODIUM [Concomitant]
     Active Substance: LOXOPROFEN SODIUM
     Indication: CANCER PAIN
     Dosage: EVERY DAY
     Route: 062
     Dates: start: 20170213
  12. BFLUID [Concomitant]
     Active Substance: AMINO ACIDS\DEXTROSE\ELECTROLYTES NOS\VITAMINS
     Indication: MALNUTRITION
     Route: 042
     Dates: start: 20170417, end: 20170506
  13. MEDI4736 [Suspect]
     Active Substance: DURVALUMAB
     Indication: SQUAMOUS CELL CARCINOMA OF HEAD AND NECK
     Route: 042
     Dates: start: 20170206, end: 20170206
  14. OXYCODONE HYDROCHLORIDE. [Concomitant]
     Active Substance: OXYCODONE HYDROCHLORIDE
     Indication: CANCER PAIN
     Dosage: 40.0MG AS REQUIRED
     Route: 048
     Dates: start: 20170209
  15. BFLUID [Concomitant]
     Active Substance: AMINO ACIDS\DEXTROSE\ELECTROLYTES NOS\VITAMINS
     Indication: NAUSEA
     Route: 042
     Dates: start: 20170414, end: 20170416
  16. BFLUID [Concomitant]
     Active Substance: AMINO ACIDS\DEXTROSE\ELECTROLYTES NOS\VITAMINS
     Indication: NAUSEA
     Route: 042
     Dates: start: 20170417, end: 20170418
  17. VITAMIN B COMPLEX [Concomitant]
     Active Substance: CYANOCOBALAMIN\DEXPANTHENOL\NIACINAMIDE\PYRIDOXINE HYDROCHLORIDE\RIBOFLAVIN 5^-PHOSPHATE SODIUM\THIAMINE HYDROCHLORIDE\VITAMIN B COMPLEX
     Indication: MALNUTRITION
     Route: 042
     Dates: start: 20170420, end: 20170424
  18. SENNOSIDE A+B CALCIUM [Concomitant]
     Active Substance: SENNOSIDES A AND B
     Indication: CONSTIPATION PROPHYLAXIS
     Dosage: 48.0MG AS REQUIRED
     Route: 042
     Dates: start: 20170313, end: 20170512
  19. MEDI4736 [Suspect]
     Active Substance: DURVALUMAB
     Indication: SQUAMOUS CELL CARCINOMA OF HEAD AND NECK
     Route: 042
     Dates: start: 20170306, end: 20170306
  20. TREMELIMUMAB. [Suspect]
     Active Substance: TREMELIMUMAB
     Indication: SQUAMOUS CELL CARCINOMA OF HEAD AND NECK
     Route: 042
     Dates: start: 20170206, end: 20170206
  21. TREMELIMUMAB. [Suspect]
     Active Substance: TREMELIMUMAB
     Indication: SQUAMOUS CELL CARCINOMA OF HEAD AND NECK
     Route: 042
     Dates: start: 20170405, end: 20170405
  22. DICLOFENAC SODIUM. [Concomitant]
     Active Substance: DICLOFENAC SODIUM
     Indication: CANCER PAIN
     Route: 048
     Dates: start: 20170315
  23. DICLOFENAC SODIUM. [Concomitant]
     Active Substance: DICLOFENAC SODIUM
     Indication: PYREXIA
     Route: 048
     Dates: start: 20170315
  24. CARBAMAZEPINE. [Concomitant]
     Active Substance: CARBAMAZEPINE
     Indication: CANCER PAIN
     Route: 048
     Dates: start: 20170420, end: 20170506
  25. BFLUID [Concomitant]
     Active Substance: AMINO ACIDS\DEXTROSE\ELECTROLYTES NOS\VITAMINS
     Indication: NAUSEA
     Route: 042
     Dates: start: 20170414, end: 20170418
  26. MEDI4736 [Suspect]
     Active Substance: DURVALUMAB
     Indication: SQUAMOUS CELL CARCINOMA OF HEAD AND NECK
     Route: 042
     Dates: start: 20170405, end: 20170405
  27. TREMELIMUMAB. [Suspect]
     Active Substance: TREMELIMUMAB
     Indication: SQUAMOUS CELL CARCINOMA OF HEAD AND NECK
     Route: 042
     Dates: start: 20170306, end: 20170306
  28. OXYCODONE HYDROCHLORIDE. [Concomitant]
     Active Substance: OXYCODONE HYDROCHLORIDE
     Indication: CANCER PAIN
     Dosage: 30.0MG AS REQUIRED
     Route: 048
     Dates: start: 20170415, end: 20170425
  29. ENSURE H [Concomitant]
     Indication: DECREASED APPETITE
     Dosage: 750.0ML AS REQUIRED
     Route: 048
     Dates: start: 20170220
  30. BFLUID [Concomitant]
     Active Substance: AMINO ACIDS\DEXTROSE\ELECTROLYTES NOS\VITAMINS
     Indication: RENAL IMPAIRMENT
     Route: 042
     Dates: start: 20170414, end: 20170418
  31. SODIUM GUALENATE HYDRATE, SODIUM BICARBONATE [Concomitant]
     Indication: ORAL PAIN
     Dates: start: 20170418
  32. INTRELIPOS [Concomitant]
     Indication: MALNUTRITION
     Route: 042
     Dates: start: 20170420
  33. OXYCODONE HYDROCHLORIDE. [Concomitant]
     Active Substance: OXYCODONE HYDROCHLORIDE
     Indication: CANCER PAIN
     Dosage: 40.0MG AS REQUIRED
     Route: 048
     Dates: start: 20170412, end: 20170413
  34. ACETAMINOPHEN. [Concomitant]
     Active Substance: ACETAMINOPHEN
     Indication: CANCER PAIN
     Route: 048
     Dates: start: 20170313, end: 20170421
  35. METOCLOPRAMIDE HYDROCHLORIDE. [Concomitant]
     Active Substance: METOCLOPRAMIDE HYDROCHLORIDE
     Indication: NAUSEA
     Route: 042
     Dates: start: 20170414, end: 20170418
  36. BFLUID [Concomitant]
     Active Substance: AMINO ACIDS\DEXTROSE\ELECTROLYTES NOS\VITAMINS
     Indication: MALNUTRITION
     Route: 042
     Dates: start: 20170414, end: 20170416
  37. BFLUID [Concomitant]
     Active Substance: AMINO ACIDS\DEXTROSE\ELECTROLYTES NOS\VITAMINS
     Indication: RENAL IMPAIRMENT
     Route: 042
     Dates: start: 20170417, end: 20170418
  38. PREDNISOLONE SODIUM SUCCINATE [Concomitant]
     Active Substance: PREDNISOLONE SODIUM SUCCINATE
     Indication: COLITIS
     Route: 042
     Dates: start: 20170419, end: 20170421
  39. OXYCODONE HYDROCHLORIDE. [Concomitant]
     Active Substance: OXYCODONE HYDROCHLORIDE
     Indication: CANCER PAIN
     Dosage: 30.0MG AS REQUIRED
     Route: 048
     Dates: start: 20170323, end: 20170412
  40. BFLUID [Concomitant]
     Active Substance: AMINO ACIDS\DEXTROSE\ELECTROLYTES NOS\VITAMINS
     Indication: MALNUTRITION
     Route: 042
     Dates: start: 20170414, end: 20170418
  41. BFLUID [Concomitant]
     Active Substance: AMINO ACIDS\DEXTROSE\ELECTROLYTES NOS\VITAMINS
     Indication: RENAL IMPAIRMENT
     Route: 042
     Dates: start: 20170414, end: 20170416
  42. BFLUID [Concomitant]
     Active Substance: AMINO ACIDS\DEXTROSE\ELECTROLYTES NOS\VITAMINS
     Indication: RENAL IMPAIRMENT
     Route: 042
     Dates: start: 20170417, end: 20170506
  43. OSELTAMIVIR PHOSPHATE. [Concomitant]
     Active Substance: OSELTAMIVIR PHOSPHATE
     Indication: ANTIVIRAL PROPHYLAXIS
     Route: 048
     Dates: start: 20170418, end: 20170428

REACTIONS (1)
  - Hepatitis [Not Recovered/Not Resolved]

NARRATIVE: CASE EVENT DATE: 20170421
